FAERS Safety Report 10195302 (Version 1)
Quarter: 2014Q2

REPORT INFORMATION
  Report Type: Spontaneous
  Country: FR (occurrence: FR)
  Receive Date: 20140526
  Receipt Date: 20140526
  Transmission Date: 20141212
  Serious: Yes (Life-Threatening, Hospitalization)
  Sender: FDA-Public Use
  Company Number: FR-JNJFOC-20140509420

PATIENT
  Age: 64 Year
  Sex: Male

DRUGS (7)
  1. STELARA [Suspect]
     Indication: PSORIASIS
     Route: 058
     Dates: start: 20130626, end: 20131222
  2. CRESTOR [Concomitant]
     Indication: DYSLIPIDAEMIA
     Route: 048
     Dates: start: 201206
  3. COUMADINE [Concomitant]
     Indication: ATRIAL FLUTTER
     Route: 048
     Dates: start: 20120403
  4. NOVONORM [Concomitant]
     Indication: TYPE 2 DIABETES MELLITUS
     Route: 048
     Dates: start: 201205
  5. LANTUS [Concomitant]
     Indication: TYPE 2 DIABETES MELLITUS
     Route: 058
     Dates: start: 201205
  6. TRIATEC [Concomitant]
     Indication: HYPERTENSION
     Route: 048
     Dates: start: 201206
  7. FUROSEMIDE [Concomitant]
     Route: 048
     Dates: start: 201206

REACTIONS (4)
  - Cardiac failure [Recovered/Resolved]
  - Bronchitis [Recovered/Resolved]
  - Respiratory failure [Recovered/Resolved]
  - Inappropriate schedule of drug administration [Unknown]
